FAERS Safety Report 8790990 (Version 1)
Quarter: 2012Q4

REPORT INFORMATION
  Report Type: Spontaneous
  Country: US (occurrence: None)
  Receive Date: 20120910
  Receipt Date: 20120910
  Transmission Date: 20130627
  Serious: Yes (Other)
  Sender: FDA-Public Use
  Company Number: C2012-772-1272

PATIENT
  Age: 76 Year
  Sex: Male
  Weight: 82.56 kg

DRUGS (1)
  1. AMPICILLIN [Suspect]
     Indication: PNEUMONIA
     Dosage: 500mg, 2 inj sites, im
     Route: 030
     Dates: start: 20120827

REACTIONS (5)
  - Musculoskeletal pain [None]
  - Asthenia [None]
  - Dyspnoea [None]
  - Tremor [None]
  - Arthralgia [None]
